FAERS Safety Report 9678106 (Version 1)
Quarter: 2013Q4

REPORT INFORMATION
  Report Type: Spontaneous
  Country: US (occurrence: US)
  Receive Date: 20131108
  Receipt Date: 20131108
  Transmission Date: 20140711
  Serious: No
  Sender: FDA-Public Use
  Company Number: US-009507513-1310USA011076

PATIENT
  Sex: Male

DRUGS (2)
  1. JANUMET [Suspect]
     Indication: TYPE 2 DIABETES MELLITUS
     Dosage: 500MG/50 MG. BID
     Route: 048
     Dates: end: 20131020
  2. METFORMIN [Concomitant]

REACTIONS (1)
  - Blood glucose increased [Recovering/Resolving]
